FAERS Safety Report 9350999 (Version 1)
Quarter: 2013Q2

REPORT INFORMATION
  Report Type: Spontaneous
  Country: US (occurrence: US)
  Receive Date: 20130617
  Receipt Date: 20130617
  Transmission Date: 20140414
  Serious: Yes (Hospitalization, Other)
  Sender: FDA-Public Use
  Company Number: US-BRISTOL-MYERS SQUIBB COMPANY-18995316

PATIENT
  Age: 85 Year
  Sex: Female

DRUGS (15)
  1. KENALOG INJ [Suspect]
     Indication: INTERVERTEBRAL DISC DEGENERATION
     Route: 008
     Dates: start: 20110831
  2. KENALOG INJ [Suspect]
     Indication: RADICULITIS
     Route: 008
     Dates: start: 20110831
  3. VORICONAZOLE [Suspect]
  4. ASPIRIN [Concomitant]
     Route: 048
  5. ALPRAZOLAM [Concomitant]
     Dosage: BID
     Route: 048
  6. ATENOLOL [Concomitant]
     Route: 048
  7. ENALAPRIL [Concomitant]
     Route: 048
  8. HYDROCHLOROTHIAZIDE [Concomitant]
     Route: 048
  9. INSULIN NPH HUMAN [Concomitant]
     Dosage: 1DF:38UNITS SC AT BREAKFAST?15UNITS SC WITH DINNER
     Route: 058
  10. KETOCONAZOLE [Concomitant]
     Route: 061
  11. LEVOTHYROXINE [Concomitant]
     Dosage: 1DF:100MCG
     Route: 048
  12. NOVOLOG [Concomitant]
  13. NIZORAL CREAM [Concomitant]
  14. MULTIVITAMIN [Concomitant]
  15. FLUOCINOLONE ACETONIDE [Concomitant]

REACTIONS (2)
  - Osteomyelitis fungal [Unknown]
  - Hepatitis acute [Unknown]
